FAERS Safety Report 13839388 (Version 1)
Quarter: 2017Q3

REPORT INFORMATION
  Report Type: Spontaneous
  Country: US (occurrence: US)
  Receive Date: 20170805
  Receipt Date: 20170805
  Transmission Date: 20171127
  Serious: Yes (Death)
  Sender: FDA-Public Use
  Company Number: None

PATIENT
  Age: 32 Year
  Sex: Male

DRUGS (5)
  1. NILOTINIB [Suspect]
     Active Substance: NILOTINIB
     Indication: LEUKAEMIA
     Route: 048
     Dates: end: 20170228
  2. METOPROLOL. [Concomitant]
     Active Substance: METOPROLOL
  3. ENOXAPARIN [Concomitant]
     Active Substance: ENOXAPARIN
  4. PREDNISONE. [Concomitant]
     Active Substance: PREDNISONE
  5. NIACIN. [Suspect]
     Active Substance: NIACIN

REACTIONS (14)
  - Hypercapnia [None]
  - Substance-induced psychotic disorder [None]
  - Haemoptysis [None]
  - Hypophagia [None]
  - Acute febrile neutrophilic dermatosis [None]
  - Gastrointestinal ulcer [None]
  - Pulseless electrical activity [None]
  - Weight decreased [None]
  - Hypoxia [None]
  - Bacteraemia [None]
  - Cardiac arrest [None]
  - Granuloma [None]
  - Oesophageal haemorrhage [None]
  - Pneumonia [None]

NARRATIVE: CASE EVENT DATE: 20170228
